FAERS Safety Report 24780568 (Version 1)
Quarter: 2024Q4

REPORT INFORMATION
  Report Type: Report from Study
  Country: CA (occurrence: CA)
  Receive Date: 20241227
  Receipt Date: 20241227
  Transmission Date: 20250114
  Serious: Yes (Other)
  Sender: ABBVIE
  Company Number: CA-ABBVIE-6061552

PATIENT
  Age: 59 Year
  Sex: Female

DRUGS (2)
  1. RINVOQ [Suspect]
     Active Substance: UPADACITINIB
     Indication: Crohn^s disease
     Dosage: LAST ADMIN DATE 2024
     Route: 048
     Dates: start: 20240306
  2. RINVOQ [Suspect]
     Active Substance: UPADACITINIB
     Indication: Crohn^s disease
     Dosage: 45 MILLIGRAM
     Route: 048
     Dates: start: 2024, end: 2024

REACTIONS (11)
  - Metabolic surgery [Unknown]
  - Gastric dilatation [Unknown]
  - Drug ineffective [Unknown]
  - Incontinence [Not Recovered/Not Resolved]
  - Ileal ulcer [Unknown]
  - Ileal stenosis [Unknown]
  - Diarrhoea [Not Recovered/Not Resolved]
  - Abdominal pain [Not Recovered/Not Resolved]
  - Abdominal distension [Not Recovered/Not Resolved]
  - Endoscopy small intestine abnormal [Unknown]
  - Anastomotic complication [Unknown]

NARRATIVE: CASE EVENT DATE: 20240101
